FAERS Safety Report 18076459 (Version 1)
Quarter: 2020Q3

REPORT INFORMATION
  Report Type: Spontaneous
  Country: IT (occurrence: IT)
  Receive Date: 20200728
  Receipt Date: 20200728
  Transmission Date: 20201103
  Serious: Yes (Other)
  Sender: FDA-Public Use
  Company Number: IT-SUN PHARMACEUTICAL INDUSTRIES LTD-2020RR-254894

PATIENT
  Age: 56 Year
  Sex: Male
  Weight: 110 kg

DRUGS (2)
  1. OLANZAPINA SUN 10 MG COMPRESSE [Suspect]
     Active Substance: OLANZAPINE
     Indication: PSYCHOTIC DISORDER
     Dosage: 10 MILLIGRAM, DAILY
     Route: 048
     Dates: start: 20200101
  2. EN [Concomitant]
     Active Substance: DELORAZEPAM
     Indication: PRODUCT USED FOR UNKNOWN INDICATION
     Dosage: ()
     Route: 065

REACTIONS (4)
  - Insomnia [Recovering/Resolving]
  - Therapeutic response shortened [Recovering/Resolving]
  - Anxiety [Recovering/Resolving]
  - Hallucination, auditory [Recovering/Resolving]

NARRATIVE: CASE EVENT DATE: 20200303
